FAERS Safety Report 7813856-7 (Version None)
Quarter: 2011Q4

REPORT INFORMATION
  Report Type: 
  Country: None (occurrence: None)
  Receive Date: 20111014
  Receipt Date: 20110830
  Transmission Date: 20120403
  Serious: Yes (Other)
  Sender: FDA-Public Use
  Company Number: US-BAYER-2011-073924

PATIENT
  Age: 84 Year
  Sex: Male

DRUGS (1)
  1. NEXAVAR [Suspect]
     Indication: RENAL CANCER
     Dosage: 400 MG, BID
     Route: 048
     Dates: start: 20110812

REACTIONS (8)
  - PAIN IN EXTREMITY [None]
  - MALAISE [None]
  - HEADACHE [None]
  - ERYTHEMA [None]
  - CONSTIPATION [None]
  - EATING DISORDER [None]
  - ASTHENIA [None]
  - FATIGUE [None]
